FAERS Safety Report 6480242-4 (Version None)
Quarter: 2009Q4

REPORT INFORMATION
  Report Type: 
  Country: None (occurrence: None)
  Receive Date: 20091202
  Receipt Date: 20091120
  Transmission Date: 20100525
  Serious: Yes (Hospitalization)
  Sender: FDA-Public Use
  Company Number: FABR-1001068

PATIENT
  Age: 52 Year
  Sex: Female
  Weight: 119 kg

DRUGS (6)
  1. FABRAZYME [Suspect]
     Indication: FABRY'S DISEASE
     Dosage: 120 MG, Q2W, INTRAVENOUS
     Route: 042
     Dates: start: 20050322
  2. FABRAZYME [Suspect]
  3. ACETAMINOPHEN [Concomitant]
  4. BENADRYL [Concomitant]
  5. INSULIN (INSULIN) [Concomitant]
  6. ANTIHYPERTENSIVES [Concomitant]

REACTIONS (4)
  - DYSPNOEA [None]
  - FLUID RETENTION [None]
  - INFLUENZA [None]
  - PNEUMONIA VIRAL [None]
